FAERS Safety Report 4306973-X (Version None)
Quarter: 2004Q1

REPORT INFORMATION
  Report Type: 
  Country: None (occurrence: None)
  Receive Date: 20040225
  Receipt Date: 20040210
  Transmission Date: 20041129
  Serious: Yes (Hospitalization)
  Sender: FDA-Public Use
  Company Number: 2004010306

PATIENT
  Age: 51 Year
  Sex: Male

DRUGS (3)
  1. PSEUDOEPHEDRINE HCL [Suspect]
     Indication: RHINITIS
     Dosage: ORAL
     Route: 048
  2. IBUPROFEN [Suspect]
     Indication: RHINITIS
     Dosage: ORAL;  2400 MG DAILY
     Route: 048
  3. DEXTROMETHORPHAN (DEXTROMETHORPHAN) [Suspect]
     Indication: RHINITIS
     Dosage: ORAL
     Route: 048

REACTIONS (7)
  - AGITATION [None]
  - APHASIA [None]
  - CARDIAC MURMUR [None]
  - CHILLS [None]
  - CONFUSIONAL STATE [None]
  - MENINGITIS ASEPTIC [None]
  - SPEECH DISORDER [None]
